FAERS Safety Report 4856025-5 (Version None)
Quarter: 2005Q4

REPORT INFORMATION
  Report Type: 
  Country: None (occurrence: None)
  Receive Date: 20051216
  Receipt Date: 20051205
  Transmission Date: 20060501
  Serious: Yes (Death)
  Sender: FDA-Public Use
  Company Number: FI-JNJFOC-20051201059

PATIENT
  Sex: Female

DRUGS (10)
  1. TOPAMAX [Suspect]
     Indication: EPILEPSY
     Route: 048
  2. HYDANTIN [Suspect]
     Indication: EPILEPSY
     Route: 048
  3. DEPRAKINE [Suspect]
     Indication: EPILEPSY
     Route: 048
  4. APODOXIN [Concomitant]
     Route: 048
  5. KEFALEX [Concomitant]
  6. DUPHALAC [Concomitant]
  7. SOMAC [Concomitant]
  8. FRAGMIN [Concomitant]
  9. KALINORM [Concomitant]
  10. EMCONCOR [Concomitant]

REACTIONS (4)
  - DRUG INTERACTION [None]
  - NEUTROPENIA [None]
  - PNEUMONIA [None]
  - SEPSIS [None]
